FAERS Safety Report 25731338 (Version 1)
Quarter: 2025Q3

REPORT INFORMATION
  Report Type: Spontaneous
  Country: US (occurrence: US)
  Receive Date: 20250827
  Receipt Date: 20250827
  Transmission Date: 20251020
  Serious: No
  Sender: PFIZER
  Company Number: US-PFIZER INC-PV202500102676

PATIENT
  Age: 53 Year
  Sex: Female

DRUGS (17)
  1. NURTEC ODT [Suspect]
     Active Substance: RIMEGEPANT SULFATE
  2. AIMOVIG [Suspect]
     Active Substance: ERENUMAB-AOOE
  3. AJOVY [Suspect]
     Active Substance: FREMANEZUMAB-VFRM
  4. QUETIAPINE FUMARATE [Concomitant]
     Active Substance: QUETIAPINE FUMARATE
  5. GABAPENTIN [Concomitant]
     Active Substance: GABAPENTIN
  6. ADDERALL [Concomitant]
     Active Substance: AMPHETAMINE ASPARTATE\AMPHETAMINE SULFATE\DEXTROAMPHETAMINE SACCHARATE\DEXTROAMPHETAMINE SULFATE
  7. UBRELVY [Concomitant]
     Active Substance: UBROGEPANT
  8. OCREVUS [Concomitant]
     Active Substance: OCRELIZUMAB
  9. VALACYCLOVIR [Concomitant]
     Active Substance: VALACYCLOVIR HYDROCHLORIDE
  10. LAMOTRIGINE [Concomitant]
     Active Substance: LAMOTRIGINE
  11. BUPROPION [Concomitant]
     Active Substance: BUPROPION
  12. VALIUM [Concomitant]
     Active Substance: DIAZEPAM
  13. TOPAMAX [Concomitant]
     Active Substance: TOPIRAMATE
  14. PROPRANOLOL HYDROCHLORIDE [Concomitant]
     Active Substance: PROPRANOLOL HYDROCHLORIDE
  15. ONDANSETRON [Concomitant]
     Active Substance: ONDANSETRON
  16. MODAFINIL [Concomitant]
     Active Substance: MODAFINIL
  17. QULIPTA [Concomitant]
     Active Substance: ATOGEPANT

REACTIONS (1)
  - Drug ineffective [Unknown]
